FAERS Safety Report 6228938-3 (Version None)
Quarter: 2009Q2

REPORT INFORMATION
  Report Type: 
  Country: None (occurrence: None)
  Receive Date: 20090611
  Receipt Date: 20090611
  Transmission Date: 20091009
  Serious: Yes (Other)
  Sender: FDA-Public Use
  Company Number: None

PATIENT
  Sex: Male
  Weight: 66.36 kg

DRUGS (1)
  1. LEVETIRACETAM [Suspect]
     Indication: EPILEPSY
     Dosage: 100MG TABS 3 TABS BID PO
     Route: 048
     Dates: start: 20090201

REACTIONS (2)
  - CONDITION AGGRAVATED [None]
  - CONVULSION [None]
